APPROVED DRUG PRODUCT: ZESTORETIC
Active Ingredient: HYDROCHLOROTHIAZIDE; LISINOPRIL
Strength: 12.5MG;10MG
Dosage Form/Route: TABLET;ORAL
Application: N019888 | Product #003 | TE Code: AB
Applicant: ALMATICA PHARMA LLC
Approved: Nov 18, 1993 | RLD: Yes | RS: No | Type: RX